FAERS Safety Report 17837175 (Version 3)
Quarter: 2020Q3

REPORT INFORMATION
  Report Type: Spontaneous
  Country: US (occurrence: US)
  Receive Date: 20200528
  Receipt Date: 20200731
  Transmission Date: 20201103
  Serious: Yes (Other)
  Sender: FDA-Public Use
  Company Number: NVSC2020US141206

PATIENT
  Age: 72 Year
  Sex: Male

DRUGS (4)
  1. CENTRUM SILVER [Concomitant]
     Active Substance: MINERALS\VITAMINS
     Indication: PRODUCT USED FOR UNKNOWN INDICATION
     Dosage: 1 DF, QD
     Route: 048
  2. BEOVU [Suspect]
     Active Substance: BROLUCIZUMAB-DBLL
     Dosage: 6 MG, QMO
     Route: 031
     Dates: start: 20200316, end: 20200504
  3. VITAMIN D [Concomitant]
     Active Substance: VITAMIN D NOS
     Indication: PRODUCT USED FOR UNKNOWN INDICATION
     Dosage: 1 DF, QD (STRENGTH: 2000 OT)
     Route: 048
  4. BEOVU [Suspect]
     Active Substance: BROLUCIZUMAB-DBLL
     Indication: NEOVASCULAR AGE-RELATED MACULAR DEGENERATION
     Dosage: 6 MG,(LEFT EYE) QMO
     Route: 031
     Dates: start: 20200120

REACTIONS (9)
  - Vitreous floaters [Unknown]
  - Uveitis [Recovering/Resolving]
  - Anterior chamber flare [Unknown]
  - Vision blurred [Unknown]
  - Cataract nuclear [Unknown]
  - Chalazion [Unknown]
  - Blindness [Unknown]
  - Vitreous detachment [Unknown]
  - Eye pain [Unknown]

NARRATIVE: CASE EVENT DATE: 20200504
